FAERS Safety Report 17075848 (Version 1)
Quarter: 2019Q4

REPORT INFORMATION
  Report Type: Spontaneous
  Country: US (occurrence: US)
  Receive Date: 20191126
  Receipt Date: 20191126
  Transmission Date: 20200122
  Serious: No
  Sender: FDA-Public Use
  Company Number: US-GE HEALTHCARE LIFE SCIENCES-2019CSU002029

PATIENT
  Age: 46 Year
  Sex: Female

DRUGS (2)
  1. VISIPAQUE [Suspect]
     Active Substance: IODIXANOL
     Indication: ABDOMINAL PAIN
  2. VISIPAQUE [Suspect]
     Active Substance: IODIXANOL
     Indication: COMPUTERISED TOMOGRAM
     Dosage: 150 ML, SINGLE
     Route: 042
     Dates: start: 20190404, end: 20190404

REACTIONS (2)
  - Urticaria [Unknown]
  - Pruritus [Unknown]
